FAERS Safety Report 5199428-4 (Version None)
Quarter: 2006Q4

REPORT INFORMATION
  Report Type: 
  Country: None (occurrence: None)
  Receive Date: 20061229
  Receipt Date: 20061219
  Transmission Date: 20070319
  Serious: Yes (Other)
  Sender: FDA-Public Use
  Company Number: TPA2006A02244

PATIENT
  Age: 62 Year
  Sex: Female

DRUGS (5)
  1. ACTOS [Suspect]
     Dosage: PER ORAL
     Route: 048
     Dates: end: 20060922
  2. SYMLIN INJECTION (DRUG USED IN DIABETES) (INJECTION) [Concomitant]
  3. METFORMIN HCL [Concomitant]
  4. LANTUS [Concomitant]
  5. BYETTA (DRUG USED IN DIABETES) [Concomitant]

REACTIONS (2)
  - SWELLING [None]
  - WEIGHT INCREASED [None]
